FAERS Safety Report 6787453-9 (Version None)
Quarter: 2010Q2

REPORT INFORMATION
  Report Type: 
  Country: None (occurrence: None)
  Receive Date: 20100623
  Receipt Date: 20070326
  Transmission Date: 20101027
  Serious: No
  Sender: FDA-Public Use
  Company Number: US-PFIZER INC-2007019922

PATIENT
  Sex: Female

DRUGS (2)
  1. DEPO-PROVERA SUSPENSION/INJ [Suspect]
     Indication: ENDOMETRIOSIS
  2. DEPO-PROVERA SUSPENSION/INJ [Suspect]
     Indication: CONTRACEPTION

REACTIONS (2)
  - METRORRHAGIA [None]
  - MUSCLE SPASMS [None]
